FAERS Safety Report 7334997-7 (Version None)
Quarter: 2011Q1

REPORT INFORMATION
  Report Type: 
  Country: None (occurrence: None)
  Receive Date: 20110307
  Receipt Date: 20110113
  Transmission Date: 20110831
  Serious: Yes (Other)
  Sender: FDA-Public Use
  Company Number: US-ROCHE-762503

PATIENT
  Sex: Male
  Weight: 90 kg

DRUGS (19)
  1. RIBAVIRIN [Suspect]
     Indication: HEPATITIS C
     Route: 048
     Dates: start: 20100301
  2. NEURONTIN [Concomitant]
     Dates: start: 20100113
  3. LABETALOL HCL [Concomitant]
  4. SENSIPAR [Concomitant]
  5. AMBIEN [Concomitant]
  6. BENTYL [Concomitant]
  7. ATARAX [Concomitant]
  8. EPOGEN [Suspect]
     Dosage: DOSE: 28000 UNITS, DOSE INCREASED
     Route: 042
     Dates: end: 20100928
  9. DIOVAN [Concomitant]
  10. PEGASYS [Suspect]
     Indication: HEPATITIS C
     Route: 030
     Dates: start: 20100301
  11. EPOGEN [Suspect]
     Indication: RENAL FAILURE CHRONIC
     Dosage: 20,000 UNITS
     Route: 042
     Dates: start: 20070101
  12. AMLODIPINE [Concomitant]
     Dates: start: 20100113
  13. ZEMPLAR [Concomitant]
  14. CIALIS [Concomitant]
  15. CODEINE [Concomitant]
  16. RENVELA [Concomitant]
  17. PRILOSEC [Concomitant]
  18. ACETAMINOPHEN [Concomitant]
  19. MIRAPEX [Concomitant]

REACTIONS (9)
  - MENISCUS LESION [None]
  - DERMAL CYST [None]
  - HYPERLIPIDAEMIA [None]
  - FOLLICULITIS [None]
  - HYPERPARATHYROIDISM SECONDARY [None]
  - CARDIAC MURMUR [None]
  - ANAEMIA [None]
  - WEIGHT DECREASED [None]
  - WHITE BLOOD CELL COUNT DECREASED [None]
